FAERS Safety Report 9677360 (Version 2)
Quarter: 2013Q4

REPORT INFORMATION
  Report Type: Spontaneous
  Country: GB (occurrence: GB)
  Receive Date: 20131108
  Receipt Date: 20131113
  Transmission Date: 20140711
  Serious: Yes (Other)
  Sender: FDA-Public Use
  Company Number: GB-MERCK-1311GBR000279

PATIENT
  Age: 75 Year
  Sex: Male

DRUGS (2)
  1. SIMVASTATIN [Suspect]
     Route: 048
  2. ELIQUIS [Suspect]
     Indication: ARRHYTHMIA PROPHYLAXIS
     Dosage: 5 MG, BID

REACTIONS (1)
  - Blood creatinine increased [Not Recovered/Not Resolved]
